FAERS Safety Report 21112213 (Version 1)
Quarter: 2022Q3

REPORT INFORMATION
  Report Type: Spontaneous
  Country: IT (occurrence: IT)
  Receive Date: 20220721
  Receipt Date: 20220721
  Transmission Date: 20221027
  Serious: Yes (Other)
  Sender: FDA-Public Use
  Company Number: None

PATIENT
  Age: 65 Year
  Sex: Female

DRUGS (1)
  1. EPIRUBICIN HYDROCHLORIDE [Suspect]
     Active Substance: EPIRUBICIN HYDROCHLORIDE
     Indication: Invasive papillary breast carcinoma
     Dosage: 160 MG
     Route: 042
     Dates: start: 20220311, end: 20220311

REACTIONS (2)
  - Skin necrosis [Not Recovered/Not Resolved]
  - Administration site extravasation [Recovered/Resolved with Sequelae]

NARRATIVE: CASE EVENT DATE: 20220311
